FAERS Safety Report 5503476-1 (Version None)
Quarter: 2007Q4

REPORT INFORMATION
  Report Type: 
  Country: None (occurrence: None)
  Receive Date: 20071029
  Receipt Date: 20071012
  Transmission Date: 20080405
  Serious: Yes (Hospitalization)
  Sender: FDA-Public Use
  Company Number: 230051M07FRA

PATIENT
  Age: 58 Year
  Sex: Male

DRUGS (7)
  1. REBIF [Suspect]
     Indication: MULTIPLE SCLEROSIS
     Dosage: 44 MCG, 3 IN 1 WEEKS
  2. ADVIL [Concomitant]
  3. DITROPAN (OXYBUTYNIN /00538901/) [Concomitant]
  4. AMLODIPINE BESYLATE [Concomitant]
  5. ZOXAN (DOXAZOSIN /00639301/) [Concomitant]
  6. EDUCTYL (EDUCTYL) [Concomitant]
  7. TRANSIPEG (TRANSIPEG /01618701/) [Concomitant]

REACTIONS (2)
  - DYSPNOEA [None]
  - RENAL IMPAIRMENT [None]
